FAERS Safety Report 5150014-1 (Version None)
Quarter: 2006Q4

REPORT INFORMATION
  Report Type: 
  Country: None (occurrence: None)
  Receive Date: 20061108
  Receipt Date: 20061026
  Transmission Date: 20070319
  Serious: Yes (Death, Other)
  Sender: FDA-Public Use
  Company Number: 2006133979

PATIENT
  Age: 81 Year
  Sex: Female

DRUGS (3)
  1. CELEBREX [Suspect]
  2. BEXTRA [Suspect]
  3. VIOXX [Suspect]
     Dates: start: 20010101

REACTIONS (3)
  - ACUTE MYOCARDIAL INFARCTION [None]
  - ARTERIOSCLEROSIS [None]
  - ISCHAEMIC STROKE [None]
